FAERS Safety Report 4576881-8 (Version None)
Quarter: 2005Q1

REPORT INFORMATION
  Report Type: 
  Country: None (occurrence: None)
  Receive Date: 20050207
  Receipt Date: 20050121
  Transmission Date: 20050727
  Serious: Yes (Hospitalization)
  Sender: FDA-Public Use
  Company Number: 2005BI000506

PATIENT
  Age: 6 Year
  Sex: Male
  Weight: 72.5755 kg

DRUGS (2)
  1. AVONEX LYPHILIZED [Suspect]
     Indication: MULTIPLE SCLEROSIS
     Dosage: 30 UG; QW; IM
     Route: 030
     Dates: start: 19980601, end: 20030801
  2. AVONEX [Suspect]
     Indication: MULTIPLE SCLEROSIS
     Dosage: 30 UG; QW; IM
     Route: 030
     Dates: start: 20030801, end: 20041109

REACTIONS (7)
  - CELLULITIS [None]
  - DEPRESSION [None]
  - DIFFICULTY IN WALKING [None]
  - FASCIITIS [None]
  - MUSCLE SPASMS [None]
  - MYOSITIS [None]
  - PAIN IN EXTREMITY [None]
